FAERS Safety Report 9346479 (Version 7)
Quarter: 2013Q3

REPORT INFORMATION
  Report Type: Report from Study
  Country: MY (occurrence: MY)
  Receive Date: 20130613
  Receipt Date: 20130927
  Transmission Date: 20140515
  Serious: Yes (Hospitalization)
  Sender: FDA-Public Use
  Company Number: MY-ROCHE-1232222

PATIENT
  Age: 67 Year
  Sex: Female
  Weight: 41.7 kg

DRUGS (5)
  1. TRASTUZUMAB EMTANSINE [Suspect]
     Indication: HER-2 POSITIVE GASTRIC CANCER
     Dosage: LAST DOSE PRIOR TO CREATININE INCREASED WAS ON 27/MAY/2013.?LAST DOSE 100MG PRIOR TO INCREASED BILIR
     Route: 042
     Dates: start: 20130514, end: 20130514
  2. TRASTUZUMAB EMTANSINE [Suspect]
     Dosage: REDUCED ONE DOSE LEVEL.
     Route: 042
     Dates: start: 20130527
  3. OXYCONTIN [Concomitant]
     Indication: ABDOMINAL PAIN
     Route: 065
     Dates: start: 20130427
  4. MORPHINE [Concomitant]
     Indication: PAIN
     Route: 065
     Dates: start: 20130427
  5. MAXOLON [Concomitant]
     Indication: VOMITING
     Route: 065
     Dates: start: 20130415

REACTIONS (2)
  - Blood creatinine increased [Recovered/Resolved]
  - Blood bilirubin increased [Not Recovered/Not Resolved]
